FAERS Safety Report 20763359 (Version 4)
Quarter: 2023Q4

REPORT INFORMATION
  Report Type: Spontaneous
  Country: US (occurrence: US)
  Receive Date: 20220428
  Receipt Date: 20231204
  Transmission Date: 20240109
  Serious: Yes (Other)
  Sender: FDA-Public Use
  Company Number: US-PFIZER INC-202200511470

PATIENT
  Age: 66 Year
  Sex: Female
  Weight: 58.97 kg

DRUGS (2)
  1. IBRANCE [Suspect]
     Active Substance: PALBOCICLIB
     Indication: Breast cancer recurrent
     Dosage: 125 MG, CYCLIC (21 DAYS ON AND 7 DAYS OFF)
     Route: 048
     Dates: start: 20220307
  2. AROMASIN [Concomitant]
     Active Substance: EXEMESTANE
     Indication: Hormone therapy
     Dosage: 25 MG, DAILY

REACTIONS (4)
  - Knee operation [Unknown]
  - Epistaxis [Not Recovered/Not Resolved]
  - Sinus disorder [Unknown]
  - Sinusitis [Unknown]

NARRATIVE: CASE EVENT DATE: 20220321
